FAERS Safety Report 4962950-7 (Version None)
Quarter: 2006Q1

REPORT INFORMATION
  Report Type: 
  Country: None (occurrence: None)
  Receive Date: 20060331
  Receipt Date: 20060316
  Transmission Date: 20060701
  Serious: Yes (Other)
  Sender: FDA-Public Use
  Company Number: ENTC2006-0032

PATIENT
  Age: 63 Year
  Sex: Female

DRUGS (5)
  1. STALEVO 100 [Suspect]
     Indication: PARKINSON'S DISEASE
     Dosage: 100/25/200MG X 3; ORAL
     Route: 048
     Dates: start: 20051017, end: 20051209
  2. ATHYMIL (MIANSERIN) [Concomitant]
  3. ZOCOR [Concomitant]
  4. MODOPAR (BENZERAZIDE-LEVODOPA) [Concomitant]
  5. TRIVASTAL [Concomitant]

REACTIONS (1)
  - GAMMA-GLUTAMYLTRANSFERASE INCREASED [None]
